FAERS Safety Report 5743643-5 (Version None)
Quarter: 2008Q2

REPORT INFORMATION
  Report Type: 
  Country: None (occurrence: None)
  Receive Date: 20080516
  Receipt Date: 20080508
  Transmission Date: 20081010
  Serious: Yes (Hospitalization)
  Sender: FDA-Public Use
  Company Number: 000899

PATIENT
  Age: 9 Month
  Sex: Male

DRUGS (10)
  1. BUSULFEX [Suspect]
     Indication: STEM CELL TRANSPLANT
     Dosage: 3.32 ML
     Dates: start: 20071105, end: 20071105
  2. BUSULFEX [Suspect]
     Indication: STEM CELL TRANSPLANT
     Dosage: 3.32 ML
     Dates: start: 20071106, end: 20071106
  3. BUSULFEX [Suspect]
     Indication: STEM CELL TRANSPLANT
     Dosage: 3.32 ML
     Dates: start: 20071107, end: 20071107
  4. BUSULFEX [Suspect]
     Indication: STEM CELL TRANSPLANT
     Dosage: 3.32 ML
     Dates: start: 20071108, end: 20071108
  5. ETOPOSIDE [Concomitant]
  6. CYCLOPHOSPHAMIDE [Concomitant]
  7. CLONAZEPAM [Concomitant]
  8. NEUPOGEN [Concomitant]
  9. METHOTREXATE [Concomitant]
  10. TACROLIMUS [Concomitant]

REACTIONS (6)
  - BLOOD BILIRUBIN INCREASED [None]
  - CONDITION AGGRAVATED [None]
  - FUNGAL INFECTION [None]
  - GRAFT VERSUS HOST DISEASE [None]
  - PNEUMONIA [None]
  - PNEUMONIA ASPIRATION [None]
